FAERS Safety Report 8140473-4 (Version None)
Quarter: 2012Q1

REPORT INFORMATION
  Report Type: 
  Country: None (occurrence: None)
  Receive Date: 20120216
  Receipt Date: 20120209
  Transmission Date: 20120608
  Serious: Yes (Hospitalization)
  Sender: FDA-Public Use
  Company Number: DE-PFIZER INC-2012036542

PATIENT
  Age: 70 Year
  Sex: Male
  Weight: 61 kg

DRUGS (9)
  1. PANTOPRAZOLE [Concomitant]
     Indication: GASTRITIS
     Dosage: 40 MG, 1X/DAY
     Route: 048
  2. LISINOPRIL [Concomitant]
     Indication: HYPERTENSION
     Dosage: 2.5 MG, 1X/DAY
     Route: 048
  3. IRINOTECAN HCL [Suspect]
     Indication: COLORECTAL CANCER METASTATIC
     Dosage: 311 MG, EVERY 2 WEEKS
     Route: 042
     Dates: end: 20120124
  4. LOPERAMIDE [Concomitant]
     Indication: DIARRHOEA
     Dosage: 2 DF, 3X/DAY
  5. FLUOROURACIL [Suspect]
     Indication: COLORECTAL CANCER METASTATIC
     Dosage: 692 MG, UNK
     Route: 042
     Dates: end: 20120126
  6. FLUOROURACIL [Suspect]
     Dosage: 4152 MG, UNK
     Route: 042
     Dates: end: 20120126
  7. ALLOPURINOL [Concomitant]
     Indication: COLORECTAL CANCER METASTATIC
     Dosage: 300 MG, 1X/DAY
     Route: 048
  8. BEVACIZUMAB [Suspect]
     Indication: COLORECTAL CANCER METASTATIC
     Dosage: 310 MG, EVERY 2 WEEKS
     Route: 042
     Dates: end: 20120124
  9. LEUCOVORIN CALCIUM [Suspect]
     Indication: COLORECTAL CANCER METASTATIC
     Dosage: 692 MG, EVERY 2 WEEKS
     Route: 042
     Dates: end: 20120124

REACTIONS (1)
  - URINARY TRACT INFECTION [None]
